FAERS Safety Report 25911587 (Version 1)
Quarter: 2025Q4

REPORT INFORMATION
  Report Type: Report from Study
  Country: US (occurrence: US)
  Receive Date: 20251013
  Receipt Date: 20251013
  Transmission Date: 20260117
  Serious: Yes (Life-Threatening, Hospitalization, Other)
  Sender: CSL BEHRING
  Company Number: US-BEH-2024171716

PATIENT
  Age: 55 Year
  Sex: Female
  Weight: 70.5 kg

DRUGS (3)
  1. HIZENTRA [Suspect]
     Active Substance: HUMAN IMMUNOGLOBULIN G
     Route: 065
  2. HIZENTRA [Suspect]
     Active Substance: HUMAN IMMUNOGLOBULIN G
     Dosage: UNK
     Route: 065
     Dates: start: 20240530
  3. HIZENTRA [Suspect]
     Active Substance: HUMAN IMMUNOGLOBULIN G
     Dosage: PRODUCT STRENGTH:1
     Route: 065

REACTIONS (13)
  - Lung neoplasm malignant [Not Recovered/Not Resolved]
  - Drug ineffective [Unknown]
  - Hepatitis B [Unknown]
  - Suspected transmission of an infectious agent via product [Unknown]
  - Erythema [Recovering/Resolving]
  - Swelling [Recovering/Resolving]
  - Influenza [Unknown]
  - Infusion site discharge [Unknown]
  - Illness [Not Recovered/Not Resolved]
  - Viral infection [Unknown]
  - Bacterial infection [Unknown]
  - Inappropriate schedule of product administration [Unknown]
  - Therapy change [Unknown]

NARRATIVE: CASE EVENT DATE: 20240101
